FAERS Safety Report 16990673 (Version 1)
Quarter: 2019Q4

REPORT INFORMATION
  Report Type: Spontaneous
  Country: US (occurrence: US)
  Receive Date: 20191104
  Receipt Date: 20191104
  Transmission Date: 20200122
  Serious: No
  Sender: FDA-Public Use
  Company Number: US-VERTEX PHARMACEUTICALS-2019-010389

PATIENT
  Sex: Female

DRUGS (5)
  1. TOBI [Concomitant]
     Active Substance: TOBRAMYCIN
  2. KALYDECO [Suspect]
     Active Substance: IVACAFTOR
     Indication: CYSTIC FIBROSIS
     Dosage: 150 MG, BID
     Route: 048
  3. ALBUTEROL [SALBUTAMOL] [Concomitant]
     Active Substance: ALBUTEROL
  4. PULMOZYME [Concomitant]
     Active Substance: DORNASE ALFA
  5. ULTRACEF [CEFPROZIL] [Concomitant]

REACTIONS (2)
  - Influenza [Unknown]
  - Infective pulmonary exacerbation of cystic fibrosis [Unknown]

NARRATIVE: CASE EVENT DATE: 2019
